FAERS Safety Report 15281444 (Version 1)
Quarter: 2018Q3

REPORT INFORMATION
  Report Type: Spontaneous
  Country: US (occurrence: US)
  Receive Date: 20180815
  Receipt Date: 20180815
  Transmission Date: 20181010
  Serious: No
  Sender: FDA-Public Use
  Company Number: US-ALLERGAN-1825602US

PATIENT
  Sex: Male
  Weight: 58.96 kg

DRUGS (1)
  1. FETZIMA [Suspect]
     Active Substance: LEVOMILNACIPRAN HYDROCHLORIDE
     Indication: DEPRESSION
     Dosage: 40 MG, QD
     Route: 065
     Dates: start: 20180425, end: 201805

REACTIONS (3)
  - Nightmare [Recovered/Resolved]
  - Middle insomnia [Recovered/Resolved]
  - Circadian rhythm sleep disorder [Recovered/Resolved]
